FAERS Safety Report 5796500-2 (Version None)
Quarter: 2008Q3

REPORT INFORMATION
  Report Type: 
  Country: None (occurrence: None)
  Receive Date: 20080701
  Receipt Date: 20080626
  Transmission Date: 20090109
  Serious: Yes (Other)
  Sender: FDA-Public Use
  Company Number: A0734982A

PATIENT
  Age: 43 Year
  Sex: Male

DRUGS (3)
  1. PAXIL [Suspect]
     Indication: DEPRESSION
     Dosage: 25MG PER DAY
     Route: 048
     Dates: start: 20050101
  2. LEVITRA [Suspect]
     Indication: LIBIDO DECREASED
     Route: 048
     Dates: start: 20080101, end: 20080101
  3. NO CONCURRENT MEDICATION [Concomitant]

REACTIONS (7)
  - AMNESIA [None]
  - ERECTION INCREASED [None]
  - HEADACHE [None]
  - IRRITABILITY [None]
  - LIBIDO DECREASED [None]
  - LOSS OF CONSCIOUSNESS [None]
  - THERAPEUTIC RESPONSE UNEXPECTED [None]
